FAERS Safety Report 10594189 (Version 1)
Quarter: 2014Q4

REPORT INFORMATION
  Report Type: Spontaneous
  Country: US (occurrence: US)
  Receive Date: 20141119
  Receipt Date: 20141119
  Transmission Date: 20150529
  Serious: No
  Sender: FDA-Public Use
  Company Number: US-BANPHARM-20142835

PATIENT
  Age: 75 Year
  Sex: Female

DRUGS (3)
  1. VITAMIN A AND D CAPSULES [Concomitant]
  2. OTHER VITAMINS [Concomitant]
  3. ERGOCALCIFEROL CAPSULES 1.25 MG [Suspect]
     Active Substance: ERGOCALCIFEROL
     Indication: VITAMIN D DECREASED
     Dosage: 1 DF, QW
     Route: 048
     Dates: start: 201405

REACTIONS (1)
  - Diarrhoea [Unknown]
